FAERS Safety Report 4583367-3 (Version None)
Quarter: 2005Q1

REPORT INFORMATION
  Report Type: 
  Country: None (occurrence: None)
  Receive Date: 20050125
  Receipt Date: 20040316
  Transmission Date: 20050727
  Serious: No
  Sender: FDA-Public Use
  Company Number: USA031049063

PATIENT
  Age: 81 Year
  Sex: Female

DRUGS (5)
  1. FORTEO [Suspect]
     Indication: FRACTURE
     Dosage: 20 UG
     Dates: start: 20030301
  2. FORTEO [Suspect]
     Indication: OSTEOPOROSIS
     Dosage: 20 UG
     Dates: start: 20030301
  3. FUROSEMIDE [Concomitant]
  4. ENALAPRIL [Concomitant]
  5. CALCIUM GLUCONATE [Concomitant]

REACTIONS (4)
  - INFUSION SITE BRUISING [None]
  - INJECTION SITE PAIN [None]
  - NAUSEA [None]
  - STOMACH DISCOMFORT [None]
